FAERS Safety Report 5015261-8 (Version None)
Quarter: 2006Q2

REPORT INFORMATION
  Report Type: 
  Country: None (occurrence: None)
  Receive Date: 20060530
  Receipt Date: 20060515
  Transmission Date: 20061013
  Serious: Yes (Hospitalization)
  Sender: FDA-Public Use
  Company Number: 2006066074

PATIENT
  Age: 78 Year
  Sex: Female
  Weight: 79.3795 kg

DRUGS (5)
  1. DETROL LA [Suspect]
     Indication: ILL-DEFINED DISORDER
     Dosage: 4 MG (4 MG, 1 IN 1 D), ORAL
     Route: 048
     Dates: start: 20050101
  2. VITAMIN A (NATURAL) CAP [Concomitant]
  3. VITAMIN C (VITAMIN C) [Concomitant]
  4. COD-LIVER OIL (COD-LIVER OIL) [Concomitant]
  5. FISH OIL (FISH OIL) [Concomitant]

REACTIONS (5)
  - BODY HEIGHT DECREASED [None]
  - CONSTIPATION [None]
  - DRY MOUTH [None]
  - GASTROOESOPHAGEAL REFLUX DISEASE [None]
  - WEIGHT DECREASED [None]
